FAERS Safety Report 4511045-5 (Version None)
Quarter: 2004Q4

REPORT INFORMATION
  Report Type: 
  Country: None (occurrence: None)
  Receive Date: 20041018
  Receipt Date: 20040909
  Transmission Date: 20050328
  Serious: No
  Sender: FDA-Public Use
  Company Number: 208937

PATIENT
  Age: 48 Year
  Sex: Female

DRUGS (8)
  1. XOLAIR [Suspect]
     Indication: ASTHMA
     Dosage: Q2W, SUBCUTANEOUS
     Route: 058
     Dates: start: 20040501
  2. PREDNISONE (PREDNSONE) [Concomitant]
  3. INSULIN [Concomitant]
  4. SINGULAIR [Concomitant]
  5. ALBUTEROL NEBULIZER (ALBUTEROL, ALBUTEROL SULFATE) [Concomitant]
  6. ATROVENT NEBULIZER (IPRATROPIUM BROMIDE) [Concomitant]
  7. VENTOLIN INHALER (ALBUTEROL, ALBUTEROL SULFATE) [Concomitant]
  8. FLOVENT INHALER (FLUTICASON PROPIONATE) [Concomitant]

REACTIONS (2)
  - CHEST PAIN [None]
  - INJECTION SITE HAEMORRHAGE [None]
